FAERS Safety Report 5831862-9 (Version None)
Quarter: 2008Q3

REPORT INFORMATION
  Report Type: 
  Country: None (occurrence: None)
  Receive Date: 20080729
  Receipt Date: 20080715
  Transmission Date: 20090109
  Serious: Yes (Death, Life-Threatening)
  Sender: FDA-Public Use
  Company Number: DEPFP-C-20080006

PATIENT
  Age: 57 Year
  Sex: Male
  Weight: 86 kg

DRUGS (10)
  1. VINORELBINE [Suspect]
     Indication: NON-SMALL CELL LUNG CANCER
     Dosage: 140 MG, INTAKE EVERY DAYS
     Route: 048
     Dates: start: 20071105, end: 20080214
  2. CISPLATIN [Suspect]
     Dosage: 138.8 MG, INTAKE EVERY DAYS
     Route: 042
     Dates: start: 20071105, end: 20080207
  3. NITROGLYCERIN [Suspect]
     Dosage: INTAKE EVERY DAYS
     Route: 062
     Dates: start: 20071102, end: 20080208
  4. NOVALGIN (METAMIZOLE SODIUM) [Concomitant]
  5. MORPHINE [Concomitant]
  6. DEXAMETHASONE SODIUM PHOSPHATE [Concomitant]
  7. DOPAMINE (DOPAMINE HYDROCHLORIDE, GLUCOSE) [Concomitant]
  8. LASIX [Concomitant]
  9. ARCOXIA [Concomitant]
  10. PANTOPRAZOLE SODIUM [Concomitant]

REACTIONS (14)
  - ANAEMIA [None]
  - CARDIOVASCULAR INSUFFICIENCY [None]
  - CHRONIC OBSTRUCTIVE PULMONARY DISEASE [None]
  - GAMMA-GLUTAMYLTRANSFERASE INCREASED [None]
  - GASTROENTERITIS NOROVIRUS [None]
  - HYPOCALCAEMIA [None]
  - NEUTROPENIA [None]
  - NIGHT SWEATS [None]
  - PLATELET COUNT DECREASED [None]
  - PNEUMONIA [None]
  - RENAL FAILURE [None]
  - TINNITUS [None]
  - WEIGHT DECREASED [None]
  - WHITE BLOOD CELL COUNT DECREASED [None]
